FAERS Safety Report 8941301 (Version 2)
Quarter: 2012Q4

REPORT INFORMATION
  Report Type: 
  Country: US (occurrence: US)
  Receive Date: 20121121
  Receipt Date: 20121212
  Transmission Date: 20130627
  Serious: Yes (Death)
  Sender: FDA-Public Use
  Company Number: US-ASTELLAS-1115075

PATIENT
  Sex: Female

DRUGS (1)
  1. TARCEVA [Suspect]
     Indication: LUNG CANCER METASTATIC
     Route: 048
     Dates: start: 20110315, end: 20110615

REACTIONS (2)
  - Pneumonia [Fatal]
  - Malignant neoplasm progression [Unknown]
